FAERS Safety Report 24131174 (Version 1)
Quarter: 2024Q3

REPORT INFORMATION
  Report Type: Report from Study
  Country: US (occurrence: US)
  Receive Date: 20240724
  Receipt Date: 20240724
  Transmission Date: 20241017
  Serious: Yes (Death, Other)
  Sender: RANBAXY
  Company Number: US-SUN PHARMACEUTICAL INDUSTRIES LTD-2024R1-458413

PATIENT
  Age: 64 Year
  Sex: Male

DRUGS (2)
  1. DOXYCYCLINE [Suspect]
     Active Substance: DOXYCYCLINE\DOXYCYCLINE HYCLATE
     Indication: Bacteraemia
     Dosage: UNK
     Route: 065
  2. DORIPENEM [Suspect]
     Active Substance: DORIPENEM
     Indication: Bacteraemia
     Dosage: UNK
     Route: 065

REACTIONS (3)
  - Disease recurrence [Fatal]
  - Transplant failure [Fatal]
  - Staphylococcal sepsis [Fatal]
